FAERS Safety Report 18415424 (Version 3)
Quarter: 2020Q4

REPORT INFORMATION
  Report Type: Spontaneous
  Country: DK (occurrence: DK)
  Receive Date: 20201022
  Receipt Date: 20201217
  Transmission Date: 20210114
  Serious: Yes (Disabling, Congenital Anomaly)
  Sender: FDA-Public Use
  Company Number: DK-AUROBINDO-AUR-APL-2020-053030

PATIENT
  Age: 8 Year
  Sex: Female
  Weight: 26.4 kg

DRUGS (1)
  1. SERTRALINE ORION FILM-COATED TABLETS 50MG [Suspect]
     Active Substance: SERTRALINE HYDROCHLORIDE
     Indication: OBSESSIVE-COMPULSIVE DISORDER
     Dosage: 75 MILLIGRAM, ONCE A DAY,
     Route: 048
     Dates: start: 20200908, end: 20200926

REACTIONS (4)
  - Product complaint [Unknown]
  - Impaired quality of life [Unknown]
  - Drug ineffective [Unknown]
  - Product substitution issue [Unknown]

NARRATIVE: CASE EVENT DATE: 20200908
